FAERS Safety Report 9624190 (Version 1)
Quarter: 2013Q4

REPORT INFORMATION
  Report Type: Spontaneous
  Country: US (occurrence: US)
  Receive Date: 20131015
  Receipt Date: 20131015
  Transmission Date: 20140711
  Serious: No
  Sender: FDA-Public Use
  Company Number: US-BAYER-2013-124597

PATIENT
  Age: 65 Year
  Sex: Female
  Weight: 76 kg

DRUGS (3)
  1. ALEVE TABLET [Suspect]
     Indication: ARTHRITIS
     Dosage: 220 MG, PRN
     Route: 048
     Dates: start: 2012
  2. ALEVE TABLET [Suspect]
     Indication: PAIN
     Dosage: 440 MG, UNK
     Dates: start: 20131009
  3. BENADRYL [Concomitant]

REACTIONS (2)
  - Blood pressure increased [Recovered/Resolved]
  - Tinnitus [Recovered/Resolved]
